FAERS Safety Report 4926454-X (Version None)
Quarter: 2006Q1

REPORT INFORMATION
  Report Type: 
  Country: None (occurrence: None)
  Receive Date: 20060228
  Receipt Date: 20051129
  Transmission Date: 20060701
  Serious: No
  Sender: FDA-Public Use
  Company Number: US-GLAXOSMITHKLINE-A0583867A

PATIENT
  Age: 19 Year
  Sex: Male

DRUGS (5)
  1. LAMICTAL [Suspect]
     Indication: OBSESSIVE-COMPULSIVE DISORDER
     Dosage: 25MG THREE TIMES PER DAY
     Route: 048
  2. WELLBUTRIN [Suspect]
     Indication: DEPRESSION
     Dosage: 100MG TWICE PER DAY
     Route: 048
  3. PAXIL [Suspect]
     Dosage: 10MG SIX TIMES PER DAY
     Route: 048
  4. ALLEGRA [Concomitant]
  5. FISH OIL [Concomitant]

REACTIONS (1)
  - RASH [None]
